FAERS Safety Report 10013121 (Version 2)
Quarter: 2014Q1

REPORT INFORMATION
  Report Type: Spontaneous
  Country: US (occurrence: US)
  Receive Date: 20140314
  Receipt Date: 20140314
  Transmission Date: 20141002
  Serious: Yes (Death)
  Sender: FDA-Public Use
  Company Number: US-GE HEALTHCARE MEDICAL DIAGNOSTICS-OSCN-PR-0710S-0387

PATIENT
  Age: 78 Year
  Sex: Male

DRUGS (2)
  1. OMNISCAN [Suspect]
     Indication: VERTIGO
     Route: 042
     Dates: start: 20040704, end: 20040704
  2. OMNISCAN [Suspect]
     Route: 042
     Dates: start: 20050411, end: 20050411

REACTIONS (1)
  - Nephrogenic systemic fibrosis [Fatal]
